FAERS Safety Report 7806901-6 (Version None)
Quarter: 2011Q4

REPORT INFORMATION
  Report Type: 
  Country: None (occurrence: None)
  Receive Date: 20111011
  Receipt Date: 20110111
  Transmission Date: 20120403
  Serious: No
  Sender: FDA-Public Use
  Company Number: US-MYLANLABS-2011S1000910

PATIENT
  Age: 72 Year
  Sex: Female

DRUGS (6)
  1. ATIVAN [Concomitant]
     Indication: HYPERTENSION
  2. DICYCLOMINE HYDROCHLORIDE [Suspect]
     Indication: IRRITABLE BOWEL SYNDROME
     Route: 055
     Dates: start: 20101101, end: 20101101
  3. ADDERALL 5 [Concomitant]
     Indication: ATTENTION DEFICIT/HYPERACTIVITY DISORDER
  4. NORVASC [Concomitant]
     Indication: HYPERTENSION
  5. LIPITOR [Concomitant]
  6. CATAPRES [Concomitant]
     Indication: HYPERTENSION

REACTIONS (4)
  - INCORRECT ROUTE OF DRUG ADMINISTRATION [None]
  - HEADACHE [None]
  - DEHYDRATION [None]
  - DRY MOUTH [None]
